FAERS Safety Report 6718727-5 (Version None)
Quarter: 2010Q2

REPORT INFORMATION
  Report Type: 
  Country: None (occurrence: None)
  Receive Date: 20100505
  Receipt Date: 20100420
  Transmission Date: 20101027
  Serious: Yes (Death, Hospitalization)
  Sender: FDA-Public Use
  Company Number: 2010001554

PATIENT
  Age: 45 Year
  Sex: Male

DRUGS (3)
  1. ERLOTINIB HYDROCHLORIDE [Suspect]
     Indication: HEPATIC NEOPLASM MALIGNANT
     Dosage: (150 MG, QD), ORAL
     Route: 048
     Dates: start: 20100113, end: 20100402
  2. SORAFENIB [Suspect]
     Indication: HEPATIC NEOPLASM MALIGNANT
     Dosage: (800 MG, QD), ORAL
     Route: 048
     Dates: start: 20100113, end: 20100402
  3. TIOPRONIN [Concomitant]

REACTIONS (5)
  - DIARRHOEA [None]
  - LOSS OF CONSCIOUSNESS [None]
  - OEDEMA [None]
  - OLIGURIA [None]
  - YELLOW SKIN [None]
